FAERS Safety Report 8876146 (Version 2)
Quarter: 2013Q2

REPORT INFORMATION
  Report Type: Report from Study
  Country: DE (occurrence: DE)
  Receive Date: 20121030
  Receipt Date: 20130614
  Transmission Date: 20140414
  Serious: Yes (Hospitalization)
  Sender: FDA-Public Use
  Company Number: DE-ABBOTT-12P-062-0999652-00

PATIENT
  Sex: Female

DRUGS (1)
  1. HUMIRA [Suspect]
     Indication: PSORIATIC ARTHROPATHY
     Route: 058
     Dates: start: 20120217, end: 20121101

REACTIONS (3)
  - Hospitalisation [Not Recovered/Not Resolved]
  - Surgery [Not Recovered/Not Resolved]
  - Cystitis [Not Recovered/Not Resolved]
